FAERS Safety Report 18583147 (Version 1)
Quarter: 2020Q4

REPORT INFORMATION
  Report Type: Spontaneous
  Country: US (occurrence: US)
  Receive Date: 20201206
  Receipt Date: 20201206
  Transmission Date: 20210114
  Serious: Yes (Hospitalization)
  Sender: FDA-Public Use
  Company Number: US-AMNEAL PHARMACEUTICALS-2020-AMRX-03717

PATIENT
  Sex: Male
  Weight: 61 kg

DRUGS (2)
  1. NORCO [Concomitant]
     Active Substance: ACETAMINOPHEN\HYDROCODONE BITARTRATE
     Indication: SCIATICA
     Dosage: 325 MILLIGRAM, BID (1 AT DAY AND 1 AT NIGHT)
     Route: 048
  2. RANITIDINE. [Suspect]
     Active Substance: RANITIDINE
     Indication: ANTACID THERAPY
     Dosage: 2 TABLETS, QD
     Route: 048
     Dates: end: 202005

REACTIONS (9)
  - Dysphagia [Unknown]
  - Gastrointestinal disorder [Recovering/Resolving]
  - Illness [Unknown]
  - Haematemesis [Recovering/Resolving]
  - Infection [Unknown]
  - Cholecystectomy [Unknown]
  - Oropharyngeal discomfort [Not Recovered/Not Resolved]
  - Weight decreased [Unknown]
  - Vomiting [Recovering/Resolving]

NARRATIVE: CASE EVENT DATE: 2020
